FAERS Safety Report 6787702-7 (Version None)
Quarter: 2010Q2

REPORT INFORMATION
  Report Type: 
  Country: None (occurrence: None)
  Receive Date: 20100623
  Receipt Date: 20070619
  Transmission Date: 20101027
  Serious: No
  Sender: FDA-Public Use
  Company Number: US-PFIZER INC-2007050668

PATIENT
  Sex: Female

DRUGS (1)
  1. R-GENE 10 [Suspect]
     Indication: GONADOTROPHIN RELEASING HORMONE STIMULATION TEST

REACTIONS (1)
  - HAEMATURIA [None]
